FAERS Safety Report 16874190 (Version 1)
Quarter: 2019Q4

REPORT INFORMATION
  Report Type: Report from Study
  Country: US (occurrence: US)
  Receive Date: 20191001
  Receipt Date: 20191001
  Transmission Date: 20200122
  Serious: Yes (Hospitalization, Other)
  Sender: FDA-Public Use
  Company Number: US-MYLANLABS-2019M1090902

PATIENT
  Age: 13 Year
  Sex: Female
  Weight: 40 kg

DRUGS (9)
  1. TEMSIROLIMUS. [Suspect]
     Active Substance: TEMSIROLIMUS
     Dosage: 20.1 MILLIGRAM
     Dates: start: 20190822, end: 20190822
  2. VINCRISTINE SULPHATE [Suspect]
     Active Substance: VINCRISTINE SULFATE
     Indication: EMBRYONAL RHABDOMYOSARCOMA
     Dosage: 1.5 MILLIGRAM/SQ. METER (ON DAYS 1, 8, AND 15)
     Route: 042
     Dates: start: 20190815
  3. VINCRISTINE SULPHATE [Suspect]
     Active Substance: VINCRISTINE SULFATE
     Dosage: 4 MILLIGRAM
     Dates: start: 20190815, end: 20190822
  4. CYCLOPHOSPHAMIDE. [Suspect]
     Active Substance: CYCLOPHOSPHAMIDE
     Indication: EMBRYONAL RHABDOMYOSARCOMA
     Dosage: 1200 MILLIGRAM/SQ. METER (OVER 60 MINUTES ON DAY 1 OF CYCLES 1 AND 3)
     Route: 042
     Dates: start: 20190815
  5. DACTINOMYCIN [Suspect]
     Active Substance: DACTINOMYCIN
     Indication: EMBRYONAL RHABDOMYOSARCOMA
     Dosage: 0.05 MILLIGRAM/SQ. METER (OVER 1-5 MINUTES ON DAY 1 OF CYCLES 1 AND 3)
     Route: 042
     Dates: start: 20190815
  6. DACTINOMYCIN [Suspect]
     Active Substance: DACTINOMYCIN
     Dosage: 2.025 MILLIGRAM
     Dates: start: 20190815, end: 20190815
  7. TEMSIROLIMUS. [Suspect]
     Active Substance: TEMSIROLIMUS
     Indication: EMBRYONAL RHABDOMYOSARCOMA
     Dosage: 15 MILLIGRAM/SQ. METER (OVER 30-60 MINUTES ON DAYS 1, 8, AND 15)
     Route: 042
     Dates: start: 20190822
  8. CYCLOPHOSPHAMIDE. [Suspect]
     Active Substance: CYCLOPHOSPHAMIDE
     Dosage: 1608 MILLIGRAM
     Dates: start: 20190815
  9. IRINOTECAN [Suspect]
     Active Substance: IRINOTECAN
     Indication: PRODUCT USED FOR UNKNOWN INDICATION
     Dosage: 50 MILLIGRAM/SQ. METER (OVER 90 MINUTES ON DAYS 1-5 OF CYCLES 2 AND 4)
     Route: 042

REACTIONS (1)
  - Dehydration [Recovered/Resolved with Sequelae]

NARRATIVE: CASE EVENT DATE: 20190823
